FAERS Safety Report 17262215 (Version 1)
Quarter: 2020Q1

REPORT INFORMATION
  Report Type: Other
  Country: US (occurrence: US)
  Receive Date: 20200113
  Receipt Date: 20200113
  Transmission Date: 20200409
  Serious: No
  Sender: FDA-Public Use
  Company Number: US-APOTEX-2019AP014460

PATIENT
  Age: 28 Year
  Sex: Female

DRUGS (7)
  1. LOPINAVIR + RITONAVIR [Suspect]
     Active Substance: LOPINAVIR\RITONAVIR
     Indication: PRODUCT USED FOR UNKNOWN INDICATION
     Dosage: UNK, (COURSE NUMBER: 1, FIRST TRIMESTER EXPOSURE, ENDED AT 14 WEEKS GA)
     Route: 048
  2. TENOFOVIR DISOPROXIL FUMARATE + EMTRICITABINE [Suspect]
     Active Substance: EMTRICITABINE\TENOFOVIR DISOPROXIL FUMARATE
     Indication: PRODUCT USED FOR UNKNOWN INDICATION
     Dosage: TOTAL DAILY DOSE 1
     Route: 048
  3. RITONAVIR. [Suspect]
     Active Substance: RITONAVIR
     Indication: PRODUCT USED FOR UNKNOWN INDICATION
     Dosage: UNK, (TOTAL DAILY DOSE: 1, COURSE NUMBER: 1, FIRST TRIMESTER EXPOSURE STARTED AT 14 WEEKS GA)
     Route: 048
  4. LAMIVUDINE. [Suspect]
     Active Substance: LAMIVUDINE
     Indication: PRODUCT USED FOR UNKNOWN INDICATION
     Dosage: 300 MG, UNK (TOTAL DAILY DOSE, COURSE 1)
     Route: 048
  5. DARUNAVIR [Suspect]
     Active Substance: DARUNAVIR
     Indication: PRODUCT USED FOR UNKNOWN INDICATION
     Dosage: UNK, (TOTAL DAILY DOSE 800, COURSE NUMBER: 1, FIRST TRIMESTER EXPOSURE STARTED AT 14 WEEKS GA)
     Route: 048
  6. ABACAVIR W/DOLUTEGRAVIR/LAMIVUDINE [Suspect]
     Active Substance: ABACAVIR SULFATE\DOLUTEGRAVIR SODIUM\LAMIVUDINE
     Indication: PRODUCT USED FOR UNKNOWN INDICATION
     Dosage: UNK, (TOTAL DAILY DOSE: 1, COURSE NUMBER: 1, FIRST TRIMESTER EXPOSURE)
     Route: 048
  7. ZIDOVUDINE. [Suspect]
     Active Substance: ZIDOVUDINE
     Indication: PRODUCT USED FOR UNKNOWN INDICATION
     Dosage: UNK, (TOTAL DAILY DOSE: 600, COURSE NUMBER: 1, SECOND TRIMESTER EXPOSURE STARTED 22, ENDED 25 WK GA
     Route: 048

REACTIONS (1)
  - Exposure during pregnancy [Unknown]
